FAERS Safety Report 8134677-4 (Version None)
Quarter: 2012Q1

REPORT INFORMATION
  Report Type: 
  Country: None (occurrence: None)
  Receive Date: 20120214
  Receipt Date: 20120203
  Transmission Date: 20120608
  Serious: No
  Sender: FDA-Public Use
  Company Number: US-JNJFOC-20120204395

PATIENT
  Sex: Male
  Weight: 104.33 kg

DRUGS (12)
  1. INDOMETHACIN [Concomitant]
     Indication: GOUT
     Route: 048
  2. DOXAZOSIN [Concomitant]
     Indication: CARDIAC DISORDER
     Route: 048
  3. FENTANYL-100 [Suspect]
     Indication: PARKINSON'S DISEASE
     Route: 062
     Dates: start: 20120202
  4. LITHIUM CARBONATE [Concomitant]
     Route: 048
  5. CITALOPRAM [Concomitant]
     Route: 048
  6. LISINOPRIL [Concomitant]
     Indication: BLOOD PRESSURE
     Route: 048
  7. ASPIRIN [Concomitant]
     Indication: CARDIAC DISORDER
     Route: 048
  8. HYDROCHLOROTHIAZIDE [Concomitant]
     Indication: BLOOD PRESSURE
     Route: 048
  9. LITHIUM CARBONATE [Concomitant]
     Route: 048
  10. FENTANYL-100 [Suspect]
     Indication: RHEUMATOID ARTHRITIS
     Route: 062
     Dates: start: 20120202
  11. UNKNOWN MEDICATION [Concomitant]
     Indication: HYPERSENSITIVITY
     Route: 048
  12. CARBIDOPA AND LEVODOPA [Concomitant]
     Indication: PARKINSON'S DISEASE
     Dosage: 25MG/100MG
     Route: 048

REACTIONS (1)
  - DRUG ADMINISTERED AT INAPPROPRIATE SITE [None]
